FAERS Safety Report 13684559 (Version 1)
Quarter: 2017Q2

REPORT INFORMATION
  Report Type: Spontaneous
  Country: US (occurrence: US)
  Receive Date: 20170623
  Receipt Date: 20170623
  Transmission Date: 20170830
  Serious: No
  Sender: FDA-Public Use
  Company Number: US-INTERPRAG-PM-OCA2017-00226

PATIENT

DRUGS (9)
  1. OMEPRAZOLE. [Concomitant]
     Active Substance: OMEPRAZOLE
  2. OMEGA 3                            /01334101/ [Concomitant]
     Active Substance: OMEGA-3 FATTY ACIDS
  3. ALPRAZOLAM. [Concomitant]
     Active Substance: ALPRAZOLAM
  4. VALSARTAN. [Concomitant]
     Active Substance: VALSARTAN
  5. EZETIMIBE. [Concomitant]
     Active Substance: EZETIMIBE
  6. TRIAM                              /00012501/ [Concomitant]
  7. OCALIVA [Suspect]
     Active Substance: OBETICHOLIC ACID
     Indication: BILIARY CIRRHOSIS PRIMARY
     Dosage: 5 MG, QD
     Route: 048
     Dates: start: 20170223
  8. DESONIDE. [Concomitant]
     Active Substance: DESONIDE
  9. URSODIOL. [Concomitant]
     Active Substance: URSODIOL

REACTIONS (2)
  - Viral upper respiratory tract infection [Unknown]
  - Pruritus [Not Recovered/Not Resolved]
